FAERS Safety Report 12237230 (Version 1)
Quarter: 2016Q2

REPORT INFORMATION
  Report Type: Spontaneous
  Country: US (occurrence: US)
  Receive Date: 20160405
  Receipt Date: 20160405
  Transmission Date: 20160815
  Serious: Yes (Hospitalization)
  Sender: FDA-Public Use
  Company Number: US-HORIZON-BUP-0042-2016

PATIENT
  Sex: Male

DRUGS (1)
  1. BUPHENYL [Suspect]
     Active Substance: SODIUM PHENYLBUTYRATE
     Indication: UREA CYCLE ENZYME DEFICIENCY

REACTIONS (1)
  - Hyperammonaemia [Not Recovered/Not Resolved]

NARRATIVE: CASE EVENT DATE: 201603
